FAERS Safety Report 23774937 (Version 1)
Quarter: 2024Q2

REPORT INFORMATION
  Report Type: Spontaneous
  Country: CN (occurrence: CN)
  Receive Date: 20240423
  Receipt Date: 20240423
  Transmission Date: 20240716
  Serious: Yes (Other)
  Sender: FDA-Public Use
  Company Number: CN-PFIZER INC-PV202400052206

PATIENT
  Age: 63 Year
  Sex: Male
  Weight: 65 kg

DRUGS (2)
  1. TIGECYCLINE [Suspect]
     Active Substance: TIGECYCLINE
     Indication: Therapeutic procedure
     Dosage: 100 MG, 2X/DAY
     Route: 041
     Dates: start: 20240228, end: 20240309
  2. CEFOPERAZONE/SULBACTAM SODIUM [Concomitant]
     Indication: Anti-infective therapy
     Dosage: UNK

REACTIONS (7)
  - Coagulopathy [Recovering/Resolving]
  - Activated partial thromboplastin time prolonged [Recovering/Resolving]
  - Blood fibrinogen decreased [Recovering/Resolving]
  - International normalised ratio increased [Recovering/Resolving]
  - Prothrombin time prolonged [Recovering/Resolving]
  - Prothrombin level decreased [Recovering/Resolving]
  - Thrombin time prolonged [Recovering/Resolving]

NARRATIVE: CASE EVENT DATE: 20240229
